FAERS Safety Report 7177097-1 (Version None)
Quarter: 2010Q4

REPORT INFORMATION
  Report Type: 
  Country: None (occurrence: None)
  Receive Date: 20101220
  Receipt Date: 20101206
  Transmission Date: 20110411
  Serious: Yes (Other)
  Sender: FDA-Public Use
  Company Number: PHHY2010TR82609

PATIENT
  Sex: Female

DRUGS (1)
  1. EXFORGE [Suspect]
     Indication: HYPERTENSION
     Dosage: 10/160 MG, ONCE DAILY
     Route: 048
     Dates: start: 20101013

REACTIONS (5)
  - ALOPECIA [None]
  - FLUSHING [None]
  - HEADACHE [None]
  - OEDEMA PERIPHERAL [None]
  - RESTLESSNESS [None]
